FAERS Safety Report 6834272-0 (Version None)
Quarter: 2010Q3

REPORT INFORMATION
  Report Type: 
  Country: None (occurrence: None)
  Receive Date: 20100712
  Receipt Date: 20070611
  Transmission Date: 20110219
  Serious: Yes (Other)
  Sender: FDA-Public Use
  Company Number: US-PFIZER INC-2007028722

PATIENT
  Sex: Female
  Weight: 58.1 kg

DRUGS (10)
  1. CHANTIX [Suspect]
     Indication: SMOKING CESSATION THERAPY
     Route: 048
     Dates: start: 20070401
  2. PLAVIX [Interacting]
  3. ZETIA [Interacting]
  4. MULTI-VITAMINS [Interacting]
  5. EFFEXOR [Interacting]
  6. ALTACE [Interacting]
  7. ACETYLSALICYLIC ACID [Concomitant]
  8. LIPITOR [Concomitant]
  9. METOPROLOL [Concomitant]
  10. ACTONEL [Concomitant]

REACTIONS (3)
  - ARTERIAL BYPASS OPERATION [None]
  - DRUG INTERACTION [None]
  - VOMITING [None]
